FAERS Safety Report 15237599 (Version 2)
Quarter: 2019Q1

REPORT INFORMATION
  Report Type: Spontaneous
  Country: US (occurrence: US)
  Receive Date: 20180803
  Receipt Date: 20190305
  Transmission Date: 20190417
  Serious: No
  Sender: FDA-Public Use
  Company Number: US-SA-2018SA210458

PATIENT
  Age: 60 Year
  Sex: Female

DRUGS (2)
  1. AUBAGIO [Suspect]
     Active Substance: TERIFLUNOMIDE
     Dosage: UNK
     Route: 048
     Dates: start: 20180710, end: 20180729
  2. AUBAGIO [Suspect]
     Active Substance: TERIFLUNOMIDE
     Dosage: UNK
     Route: 048
     Dates: start: 20180801

REACTIONS (3)
  - Abdominal discomfort [Unknown]
  - Malaise [Unknown]
  - Alopecia [Unknown]

NARRATIVE: CASE EVENT DATE: 20180729
